FAERS Safety Report 25663240 (Version 1)
Quarter: 2025Q3

REPORT INFORMATION
  Report Type: Spontaneous
  Country: US (occurrence: US)
  Receive Date: 20250811
  Receipt Date: 20250811
  Transmission Date: 20251020
  Serious: No
  Sender: Unknown Manufacturer
  Company Number: US-STRIDES ARCOLAB LIMITED-2025-ST-000856

PATIENT
  Age: 44 Year
  Sex: Male

DRUGS (2)
  1. ACETYLCYSTEINE [Suspect]
     Active Substance: ACETYLCYSTEINE
     Indication: Liver injury
     Route: 065
  2. ATOMOXETINE [Concomitant]
     Active Substance: ATOMOXETINE
     Indication: Attention deficit hyperactivity disorder
     Route: 065

REACTIONS (3)
  - Dyspnoea [Unknown]
  - Flushing [Unknown]
  - Off label use [Unknown]
